FAERS Safety Report 8082906-8 (Version None)
Quarter: 2012Q1

REPORT INFORMATION
  Report Type: 
  Country: None (occurrence: None)
  Receive Date: 20120127
  Receipt Date: 20110213
  Transmission Date: 20120608
  Serious: No
  Sender: FDA-Public Use
  Company Number: US-ABBOTT-11P-163-0705145-00

PATIENT
  Age: 26 Year
  Sex: Female

DRUGS (2)
  1. HUMIRA [Suspect]
     Indication: PSORIASIS
     Dates: start: 20090101
  2. ANTIBIOTICS [Concomitant]
     Indication: RASH

REACTIONS (5)
  - OROPHARYNGEAL PAIN [None]
  - RASH PAPULAR [None]
  - MALAISE [None]
  - FATIGUE [None]
  - BLISTER [None]
